FAERS Safety Report 7794103-1 (Version None)
Quarter: 2011Q4

REPORT INFORMATION
  Report Type: 
  Country: None (occurrence: None)
  Receive Date: 20111004
  Receipt Date: 20110921
  Transmission Date: 20120403
  Serious: Yes (Other)
  Sender: FDA-Public Use
  Company Number: US-JNJFOC-20111000216

PATIENT
  Age: 18 Year
  Sex: Male
  Weight: 95.26 kg

DRUGS (1)
  1. EXTRA STRENGTH TYLENOL PM [Suspect]
     Indication: MIGRAINE
     Route: 048
     Dates: start: 20110919, end: 20110919

REACTIONS (1)
  - OVERDOSE [None]
